FAERS Safety Report 10173332 (Version 1)
Quarter: 2014Q2

REPORT INFORMATION
  Report Type: Spontaneous
  Country: US (occurrence: None)
  Receive Date: 20140514
  Receipt Date: 20140514
  Transmission Date: 20141212
  Serious: Yes (Life-Threatening, Hospitalization, Other)
  Sender: FDA-Public Use
  Company Number: None

PATIENT
  Age: 40 Year
  Sex: Male
  Weight: 102.06 kg

DRUGS (1)
  1. FONDAPARINUX [Suspect]
     Indication: PRODUCT USED FOR UNKNOWN INDICATION
     Dosage: @ DOSES A DAY ?TWICE DAILY ?GIVEN INTO/UNDER THE SKIN
     Dates: start: 20140503, end: 20140503

REACTIONS (9)
  - Depression [None]
  - Sleep disorder [None]
  - Cardiovascular disorder [None]
  - Dizziness [None]
  - Memory impairment [None]
  - Gait disturbance [None]
  - Thrombosis [None]
  - Heart rate increased [None]
  - Product quality issue [None]
